FAERS Safety Report 7894329-2 (Version None)
Quarter: 2011Q4

REPORT INFORMATION
  Report Type: 
  Country: None (occurrence: None)
  Receive Date: 20111104
  Receipt Date: 20111026
  Transmission Date: 20120403
  Serious: Yes (Other)
  Sender: FDA-Public Use
  Company Number: JP-MERCK-1110USA04548

PATIENT
  Age: 10 Year
  Sex: Male

DRUGS (6)
  1. METHOTREXATE [Concomitant]
     Route: 065
  2. VINCRISTINE SULFATE [Concomitant]
     Route: 065
  3. PREDNISOLONE SODIUM SUCCINATE [Concomitant]
     Route: 065
  4. DECADRON [Suspect]
     Indication: LEUKAEMIA RECURRENT
     Route: 048
  5. CYTARABINE [Concomitant]
     Route: 065
  6. PIRARUBICIN [Concomitant]
     Route: 065

REACTIONS (1)
  - BONE MARROW FAILURE [None]
